FAERS Safety Report 9957473 (Version 1)
Quarter: 2014Q1

REPORT INFORMATION
  Report Type: Report from Study
  Country: US (occurrence: US)
  Receive Date: 20140304
  Receipt Date: 20140304
  Transmission Date: 20141002
  Serious: No
  Sender: FDA-Public Use
  Company Number: US-ABBVIE-13P-163-1094521-00

PATIENT
  Age: 65 Year
  Sex: Female

DRUGS (21)
  1. HUMIRA [Suspect]
     Indication: CROHN^S DISEASE
     Dates: start: 20130409
  2. ASACOL [Concomitant]
     Indication: CROHN^S DISEASE
  3. AZATHIOPRINE [Concomitant]
     Indication: CROHN^S DISEASE
     Dosage: 50MG DAILY
     Route: 048
  4. WELLBUTRIN [Concomitant]
     Indication: DEPRESSION
     Route: 048
  5. SEROQUEL [Concomitant]
     Indication: INSOMNIA
     Dosage: AT BEDTIME
     Route: 048
  6. XANAX [Concomitant]
     Indication: ANXIETY
     Route: 048
  7. SAVELLA [Concomitant]
     Indication: FIBROMYALGIA
     Route: 048
  8. MOBIC [Concomitant]
     Indication: ARTHRITIS
     Dosage: 15 MG DAILY IN AM
     Route: 048
  9. REMERON [Concomitant]
     Indication: INSOMNIA
     Dosage: AT BEDTIME
     Route: 048
  10. REMERON [Concomitant]
     Indication: DEPRESSION
  11. SINGULAR [Concomitant]
     Indication: HYPERSENSITIVITY
     Dosage: 10 MG DAILY
     Route: 048
  12. ATENOLOL [Concomitant]
     Indication: MIGRAINE
     Route: 048
  13. SYNTHROID [Concomitant]
     Indication: THYROID DISORDER
     Dosage: 150 MG DAILY
     Route: 048
  14. CELEXA [Concomitant]
     Indication: DEPRESSION
     Dosage: 20 MG DAILY
     Route: 048
  15. PRAVACHOL [Concomitant]
     Indication: BLOOD CHOLESTEROL
     Dosage: 20 MG DAILY AT BEDTIME
     Route: 048
  16. ESTRACE [Concomitant]
     Indication: HORMONE REPLACEMENT THERAPY
     Dosage: 2 MG DAILY
     Route: 048
  17. TOPAMAX [Concomitant]
     Indication: MIGRAINE
     Route: 048
  18. KEPPRA [Concomitant]
     Indication: MIGRAINE
     Route: 048
  19. LASIX [Concomitant]
     Indication: OEDEMA PERIPHERAL
     Dosage: 40 MG DAILY
     Route: 048
  20. NEXIUM [Concomitant]
     Indication: GASTRIC DISORDER
     Dosage: 40 MG DAILY
     Route: 048
  21. NEXIUM [Concomitant]
     Indication: OESOPHAGEAL DISORDER

REACTIONS (2)
  - Somnolence [Not Recovered/Not Resolved]
  - Malaise [Not Recovered/Not Resolved]
